FAERS Safety Report 13619151 (Version 1)
Quarter: 2017Q2

REPORT INFORMATION
  Report Type: Spontaneous
  Country: US (occurrence: US)
  Receive Date: 20170606
  Receipt Date: 20170606
  Transmission Date: 20170830
  Serious: No
  Sender: FDA-Public Use
  Company Number: US-AMGEN-USASP2016117206

PATIENT
  Sex: Male

DRUGS (2)
  1. EPOGEN [Suspect]
     Active Substance: ERYTHROPOIETIN
     Indication: NEPHROGENIC ANAEMIA
     Dosage: UNK
     Route: 065
  2. EPOGEN [Suspect]
     Active Substance: ERYTHROPOIETIN
     Dosage: 8000 UNITS, THREE TIMES WEEKLY
     Route: 065

REACTIONS (1)
  - Inappropriate schedule of drug administration [Unknown]
